FAERS Safety Report 9690743 (Version 1)
Quarter: 2013Q4

REPORT INFORMATION
  Report Type: Spontaneous
  Country: US (occurrence: None)
  Receive Date: 20131114
  Receipt Date: 20131114
  Transmission Date: 20140711
  Serious: No
  Sender: FDA-Public Use
  Company Number: None

PATIENT
  Age: 6 Year
  Sex: Male
  Weight: 34.02 kg

DRUGS (1)
  1. PROAIR HFA [Suspect]
     Indication: ASTHMA
     Dosage: 2 PUFFS AS NEEDED TAKEN BY MOUTH
     Route: 048
     Dates: start: 20131113, end: 20131113

REACTIONS (4)
  - Eye pain [None]
  - Pruritus [None]
  - Erythema [None]
  - Swelling [None]
